FAERS Safety Report 21309876 (Version 6)
Quarter: 2024Q1

REPORT INFORMATION
  Report Type: Report from Study
  Country: US (occurrence: US)
  Receive Date: 20220908
  Receipt Date: 20240123
  Transmission Date: 20240409
  Serious: Yes (Other)
  Sender: FDA-Public Use
  Company Number: US-BIOGEN-2022BI01150976

PATIENT
  Age: 67 Year
  Sex: Female

DRUGS (7)
  1. VUMERITY [Suspect]
     Active Substance: DIROXIMEL FUMARATE
     Indication: Multiple sclerosis
     Route: 050
     Dates: start: 20220812, end: 20220828
  2. VUMERITY [Suspect]
     Active Substance: DIROXIMEL FUMARATE
     Route: 050
     Dates: start: 20220829, end: 20220831
  3. VUMERITY [Suspect]
     Active Substance: DIROXIMEL FUMARATE
     Route: 050
     Dates: start: 20220902
  4. VUMERITY [Suspect]
     Active Substance: DIROXIMEL FUMARATE
     Route: 050
     Dates: start: 20220923
  5. VUMERITY [Suspect]
     Active Substance: DIROXIMEL FUMARATE
     Dosage: MAINTENANCE DOSE
     Route: 050
     Dates: start: 202209
  6. VUMERITY [Suspect]
     Active Substance: DIROXIMEL FUMARATE
     Route: 050
     Dates: start: 20220819
  7. VUMERITY [Suspect]
     Active Substance: DIROXIMEL FUMARATE
     Dosage: FOR SEVEN DAYS
     Route: 050
     Dates: start: 20220812

REACTIONS (19)
  - Atrial fibrillation [Unknown]
  - Paraesthesia [Unknown]
  - Decreased appetite [Unknown]
  - Taste disorder [Unknown]
  - Balance disorder [Not Recovered/Not Resolved]
  - Motor dysfunction [Unknown]
  - Cough [Unknown]
  - Throat irritation [Unknown]
  - Asthenia [Unknown]
  - Urinary tract infection [Unknown]
  - Heart rate increased [Recovered/Resolved]
  - Abdominal discomfort [Unknown]
  - Alopecia [Unknown]
  - Diarrhoea [Unknown]
  - Nausea [Recovered/Resolved]
  - Flushing [Not Recovered/Not Resolved]
  - Malaise [Unknown]
  - Fatigue [Not Recovered/Not Resolved]
  - Lymphocyte count decreased [Unknown]

NARRATIVE: CASE EVENT DATE: 20220812
